FAERS Safety Report 7842880 (Version 2)
Quarter: 2013Q4

REPORT INFORMATION
  Report Type: Spontaneous
  Country: US (occurrence: US)
  Receive Date: 20110307
  Receipt Date: 20131108
  Transmission Date: 20140711
  Serious: Yes (Other)
  Sender: FDA-Public Use
  Company Number: US-BAYER-2011-019474

PATIENT
  Age: 24 Year
  Sex: Female

DRUGS (2)
  1. YAZ [Suspect]
     Indication: CONTRACEPTION
     Dosage: UNK UNK, CONT
     Route: 048
     Dates: start: 201002, end: 201009
  2. YASMIN [Suspect]
     Dosage: UNK UNK, CONT
     Route: 048
     Dates: start: 200607, end: 200706

REACTIONS (8)
  - Cholecystitis chronic [None]
  - Cholelithiasis [None]
  - Injury [None]
  - Pain [None]
  - Emotional distress [None]
  - General physical health deterioration [None]
  - Anxiety [None]
  - Emotional distress [None]
